FAERS Safety Report 6432785-7 (Version None)
Quarter: 2009Q4

REPORT INFORMATION
  Report Type: 
  Country: None (occurrence: None)
  Receive Date: 20091109
  Receipt Date: 20091029
  Transmission Date: 20100525
  Serious: Yes (Death, Hospitalization)
  Sender: FDA-Public Use
  Company Number: A0810842A

PATIENT
  Age: 32 Year
  Sex: Female

DRUGS (3)
  1. TYKERB [Suspect]
     Dosage: 1250MG PER DAY
     Route: 048
     Dates: start: 20080601, end: 20090701
  2. CAPECITABINE [Suspect]
     Route: 048
     Dates: start: 20080601
  3. FASLODEX [Concomitant]

REACTIONS (9)
  - ASTHENIA [None]
  - DISEASE PROGRESSION [None]
  - DIZZINESS [None]
  - EASTERN COOPERATIVE ONCOLOGY GROUP PERFORMANCE STATUS WORSENED [None]
  - GAIT DISTURBANCE [None]
  - MALAISE [None]
  - PALMAR-PLANTAR ERYTHRODYSAESTHESIA SYNDROME [None]
  - PERFORMANCE STATUS DECREASED [None]
  - WEIGHT DECREASED [None]
